FAERS Safety Report 21346203 (Version 1)
Quarter: 2022Q3

REPORT INFORMATION
  Report Type: Spontaneous
  Country: DE (occurrence: DE)
  Receive Date: 20220917
  Receipt Date: 20220917
  Transmission Date: 20221027
  Serious: Yes (Hospitalization)
  Sender: FDA-Public Use
  Company Number: DE-NOVARTISPH-NVSC2022DE205831

PATIENT
  Age: 74 Year
  Sex: Male
  Weight: 92 kg

DRUGS (17)
  1. CLOPIDOGREL [Suspect]
     Active Substance: CLOPIDOGREL BISULFATE
     Indication: Product used for unknown indication
     Dosage: 75 MG, 1-0-0-0
     Route: 048
  2. METFORMIN [Suspect]
     Active Substance: METFORMIN HYDROCHLORIDE
     Indication: Product used for unknown indication
     Dosage: 500 MG, 0-0-1-0
     Route: 048
  3. BISOPROLOL [Suspect]
     Active Substance: BISOPROLOL
     Indication: Product used for unknown indication
     Dosage: 5 MG, 0.5-0-0.5-0
     Route: 048
  4. FEBUXOSTAT [Suspect]
     Active Substance: FEBUXOSTAT
     Indication: Product used for unknown indication
     Dosage: 80 MG, 1-0-0-0
     Route: 048
  5. APIXABAN [Suspect]
     Active Substance: APIXABAN
     Indication: Product used for unknown indication
     Dosage: 2.5 MG, 1-0-1-0
     Route: 048
  6. TORSEMIDE [Suspect]
     Active Substance: TORSEMIDE
     Indication: Product used for unknown indication
     Dosage: 50 MG, (1-0-0-0)
     Route: 048
  7. ZOPICLONE [Concomitant]
     Active Substance: ZOPICLONE
     Indication: Product used for unknown indication
     Dosage: 7.5 MG, BEDARF
     Route: 048
  8. PANTOPRAZOLE SODIUM [Concomitant]
     Active Substance: PANTOPRAZOLE SODIUM
     Indication: Product used for unknown indication
     Dosage: 40 MG, BEDARF
     Route: 048
  9. LEVOTHYROXINE [Concomitant]
     Active Substance: LEVOTHYROXINE
     Indication: Product used for unknown indication
     Dosage: 150 ?G, 1-0-0-0, TABLETTEN
     Route: 048
  10. BUDESONIDE [Concomitant]
     Active Substance: BUDESONIDE
     Indication: Product used for unknown indication
     Dosage: 200 ?G, 1-0-1-0, KAPSELN
  11. METAMIZOLE [Concomitant]
     Active Substance: METAMIZOLE
     Indication: Product used for unknown indication
     Dosage: 500 MG, 1-1-1-0, TABLETTEN
     Route: 048
  12. TIOTROPII BROMIDUM [Concomitant]
     Indication: Product used for unknown indication
     Dosage: 18 ?G, 1-0-1-0
  13. FORMOTEROL [Concomitant]
     Active Substance: FORMOTEROL
     Indication: Product used for unknown indication
     Dosage: 12 ?G, 1-0-1-0
  14. TAMSULOSIN [Concomitant]
     Active Substance: TAMSULOSIN
     Indication: Product used for unknown indication
     Dosage: 0.4 MG, 0-1-0-0
     Route: 048
  15. LIRAGLUTIDE [Concomitant]
     Active Substance: LIRAGLUTIDE
     Indication: Product used for unknown indication
     Dosage: 18 MG/3ML, 1-0-0-0
     Route: 058
  16. MAGNESIUM [Concomitant]
     Active Substance: MAGNESIUM
     Indication: Product used for unknown indication
     Dosage: 243 MG, 0-0-1-0,
     Route: 048
  17. ALBUTEROL [Concomitant]
     Active Substance: ALBUTEROL
     Indication: Product used for unknown indication
     Dosage: 1.25 MG/2.5ML, BEDARF

REACTIONS (5)
  - Oedema peripheral [Unknown]
  - Constipation [Unknown]
  - Paraesthesia [Unknown]
  - Product prescribing error [Unknown]
  - Product prescribing error [Unknown]
